FAERS Safety Report 5603853-4 (Version None)
Quarter: 2008Q1

REPORT INFORMATION
  Report Type: 
  Country: None (occurrence: None)
  Receive Date: 20080123
  Receipt Date: 20080114
  Transmission Date: 20080703
  Serious: Yes (Hospitalization)
  Sender: FDA-Public Use
  Company Number: 2008S1000673

PATIENT
  Age: 51 Year
  Sex: Male
  Weight: 99.7913 kg

DRUGS (5)
  1. PHENYTOIN SODIUM [Suspect]
     Indication: CONVULSION
     Dosage: 600 MG; DAILY; ORAL
     Route: 048
     Dates: start: 20060601
  2. OXYCONTIN [Concomitant]
  3. FEXOFENADINE [Concomitant]
  4. CYCLOBENZAPRINE HCL [Concomitant]
  5. IBUPROFEN [Concomitant]

REACTIONS (3)
  - ANTICONVULSANT DRUG LEVEL DECREASED [None]
  - CONVULSION [None]
  - POSTICTAL PARALYSIS [None]
